FAERS Safety Report 9119251 (Version 1)
Quarter: 2013Q1

REPORT INFORMATION
  Report Type: Spontaneous
  Country: US (occurrence: None)
  Receive Date: 20130221
  Receipt Date: 20130221
  Transmission Date: 20140127
  Serious: Yes (Other)
  Sender: FDA-Public Use
  Company Number: None

PATIENT
  Age: 62 Year
  Sex: Female
  Weight: 86 kg

DRUGS (17)
  1. PFIZERPEN [Suspect]
     Indication: MEDICAL DEVICE COMPLICATION
     Dosage: 24 MU CONTINOUS INFUSION IV
     Route: 042
     Dates: start: 20130214, end: 20130218
  2. PFIZERPEN [Suspect]
  3. ENALAPIRL-HCTZ [Concomitant]
  4. TOPIRAMATE [Concomitant]
  5. METAHDONE [Concomitant]
  6. WELLBUTRIN SR [Concomitant]
  7. PERCOCET [Concomitant]
  8. FUROSEMIDE [Concomitant]
  9. POTASSIUM CHLROIDE [Concomitant]
  10. VITAMIN D [Concomitant]
  11. MULTIVITAMIN [Concomitant]
  12. MAGNESIUM [Concomitant]
  13. FLAXSEED OIL [Concomitant]
  14. GLUCOSAMINE-CHONDROITIN [Concomitant]
  15. FERROUS GLUCONATE [Concomitant]
  16. VITAMIN B12 [Concomitant]
  17. COLACE [Concomitant]

REACTIONS (2)
  - Rash [None]
  - Abdominal discomfort [None]
